FAERS Safety Report 12468553 (Version 3)
Quarter: 2019Q1

REPORT INFORMATION
  Report Type: Spontaneous
  Country: CN (occurrence: CN)
  Receive Date: 20160615
  Receipt Date: 20190327
  Transmission Date: 20190417
  Serious: Yes (Death, Life-Threatening, Hospitalization)
  Sender: FDA-Public Use
  Company Number: CN-CELGENEUS-CHN-2016060026

PATIENT
  Age: 70 Year
  Sex: Male

DRUGS (2)
  1. CISPLATIN. [Concomitant]
     Active Substance: CISPLATIN
     Indication: SQUAMOUS CELL CARCINOMA OF LUNG
     Route: 065
     Dates: start: 20150603
  2. ABRAXANE [Suspect]
     Active Substance: PACLITAXEL
     Indication: SQUAMOUS CELL CARCINOMA OF LUNG
     Route: 041
     Dates: start: 20150603

REACTIONS (13)
  - Vomiting [Unknown]
  - Decreased appetite [Unknown]
  - Pyrexia [Unknown]
  - Asthenia [Unknown]
  - Bone marrow failure [Unknown]
  - Lung infection [Unknown]
  - Asthenia [Unknown]
  - Vomiting [Unknown]
  - Pain [Unknown]
  - Pulmonary fibrosis [Fatal]
  - Bone marrow failure [Unknown]
  - Nausea [Unknown]
  - Diarrhoea [Unknown]

NARRATIVE: CASE EVENT DATE: 201506
